FAERS Safety Report 7010888 (Version 2)
Quarter: 2014Q1

REPORT INFORMATION
  Report Type: Spontaneous
  Country: US (occurrence: None)
  Receive Date: 20090526
  Receipt Date: 20140124
  Transmission Date: 20141002
  Serious: Yes (Other)
  Sender: FDA-Public Use
  Company Number: 2009S1004150

PATIENT
  Age: 73 Year
  Sex: Female
  Weight: 73.94 kg

DRUGS (1)
  1. SODIUM PHOSPHATE, DIBASIC\SODIUM PHOSPHATE, MONOBASIC, ANHYDROUS [Suspect]
     Indication: COLONOSCOPY
     Dosage: PO
     Route: 048
     Dates: start: 200811

REACTIONS (6)
  - Renal failure [None]
  - Abdominal discomfort [None]
  - Flank pain [None]
  - Abdominal pain upper [None]
  - Mucous stools [None]
  - Haematochezia [None]
